FAERS Safety Report 11574315 (Version 3)
Quarter: 2016Q1

REPORT INFORMATION
  Report Type: Spontaneous
  Country: US (occurrence: US)
  Receive Date: 20150930
  Receipt Date: 20160225
  Transmission Date: 20160525
  Serious: No
  Sender: FDA-Public Use
  Company Number: US-009507513-1509USA012996

PATIENT
  Age: 26 Year
  Sex: Female
  Weight: 82.54 kg

DRUGS (1)
  1. NEXPLANON [Suspect]
     Active Substance: ETONOGESTREL
     Dosage: UNK
     Route: 059
     Dates: start: 201203

REACTIONS (7)
  - Device difficult to use [Unknown]
  - Device deployment issue [Unknown]
  - Complication associated with device [Unknown]
  - Incorrect drug administration duration [Unknown]
  - No adverse event [Unknown]
  - Device dislocation [Unknown]
  - Incorrect route of drug administration [Unknown]

NARRATIVE: CASE EVENT DATE: 201203
